FAERS Safety Report 24080492 (Version 2)
Quarter: 2024Q3

REPORT INFORMATION
  Report Type: Spontaneous
  Country: AU (occurrence: AU)
  Receive Date: 20240711
  Receipt Date: 20240712
  Transmission Date: 20241017
  Serious: Yes (Other)
  Sender: ADC THERAPEUTICS
  Company Number: AU-BIOVITRUM-2024-AU-006443

PATIENT

DRUGS (1)
  1. ZYNLONTA [Suspect]
     Active Substance: LONCASTUXIMAB TESIRINE-LPYL
     Indication: Diffuse large B-cell lymphoma
     Dosage: UNK

REACTIONS (6)
  - Diffuse large B-cell lymphoma refractory [Not Recovered/Not Resolved]
  - Malignant neoplasm progression [Unknown]
  - Pericardial effusion [Unknown]
  - Pleural effusion [Unknown]
  - Generalised oedema [Unknown]
  - Photosensitivity reaction [Unknown]
